FAERS Safety Report 4510408-1 (Version None)
Quarter: 2004Q4

REPORT INFORMATION
  Report Type: 
  Country: None (occurrence: None)
  Receive Date: 20041122
  Receipt Date: 20041109
  Transmission Date: 20050328
  Serious: Yes (Hospitalization)
  Sender: FDA-Public Use
  Company Number: 181154

PATIENT
  Age: 60 Year
  Sex: Female

DRUGS (9)
  1. AVONEX [Suspect]
     Indication: MULTIPLE SCLEROSIS
     Dosage: 30 MCG QW IM
     Route: 030
     Dates: start: 20010829, end: 20030801
  2. AVONEX [Suspect]
     Indication: MULTIPLE SCLEROSIS
     Dosage: 30 MCG QW IM
     Route: 030
     Dates: start: 20030801, end: 20030901
  3. AVONEX [Suspect]
     Indication: MULTIPLE SCLEROSIS
     Dates: start: 20040701
  4. PAXIL [Concomitant]
  5. LAMICTAL [Concomitant]
  6. COUMADIN [Concomitant]
  7. LANOXIN [Concomitant]
  8. LIPITOR [Concomitant]
  9. VASOTEC [Concomitant]

REACTIONS (2)
  - APPENDICECTOMY [None]
  - GASTROINTESTINAL DISORDER [None]
